FAERS Safety Report 18354084 (Version 1)
Quarter: 2020Q4

REPORT INFORMATION
  Report Type: Spontaneous
  Country: DE (occurrence: DE)
  Receive Date: 20201007
  Receipt Date: 20201007
  Transmission Date: 20210114
  Serious: Yes (Congenital Anomaly, Other)
  Sender: FDA-Public Use
  Company Number: DE-DRREDDYS-GER/GER/20/0127590

PATIENT
  Age: 1 Day
  Sex: Female
  Weight: 1.28 kg

DRUGS (10)
  1. NIFEDIPIN [Concomitant]
     Active Substance: NIFEDIPINE
     Indication: PRODUCT USED FOR UNKNOWN INDICATION
     Dosage: 15 [MG/D (3X5 MG) ]
     Route: 064
  2. BISOPROLOL [Suspect]
     Active Substance: BISOPROLOL
     Indication: PRODUCT USED FOR UNKNOWN INDICATION
     Dosage: 5 [MG/D ]
     Route: 064
  3. QUETIAPINE. [Suspect]
     Active Substance: QUETIAPINE
     Indication: PRODUCT USED FOR UNKNOWN INDICATION
     Dosage: 125 [MG/D (BIS 62.5) ]
     Route: 064
     Dates: start: 20181219, end: 20190731
  4. ESCITALOPRAM [Concomitant]
     Active Substance: ESCITALOPRAM OXALATE
     Indication: PRODUCT USED FOR UNKNOWN INDICATION
     Dosage: 5 [MG/D ]
     Route: 064
  5. HYDROCHLOROTHIAZIDE. [Suspect]
     Active Substance: HYDROCHLOROTHIAZIDE
     Indication: PRODUCT USED FOR UNKNOWN INDICATION
     Dosage: 25 [MG/D ]
     Route: 064
  6. ARIPIPRAZOLE. [Concomitant]
     Active Substance: ARIPIPRAZOLE
     Indication: PRODUCT USED FOR UNKNOWN INDICATION
     Dosage: 5 [MG/D ]
     Route: 064
     Dates: start: 20181219, end: 20190128
  7. DULOXETINE. [Suspect]
     Active Substance: DULOXETINE
     Indication: PRODUCT USED FOR UNKNOWN INDICATION
     Dosage: 90 [MG/D (BIS 60) ]
     Route: 064
     Dates: start: 20181219, end: 20190731
  8. PRESINOL [Concomitant]
     Active Substance: METHYLDOPA
     Indication: PRODUCT USED FOR UNKNOWN INDICATION
     Dosage: 500 [MG/D (2X250 MG) ]
     Route: 064
     Dates: start: 20190428, end: 20190731
  9. VALSARTAN. [Suspect]
     Active Substance: VALSARTAN
     Indication: PRODUCT USED FOR UNKNOWN INDICATION
     Dosage: 80 [MG/D ]
     Route: 064
  10. ACETAZOLAMIDE. [Concomitant]
     Active Substance: ACETAZOLAMIDE
     Indication: PRODUCT USED FOR UNKNOWN INDICATION
     Dosage: 500 [MG/D ]
     Route: 064
     Dates: start: 20181219, end: 20190128

REACTIONS (9)
  - Foetal heart rate deceleration abnormality [Unknown]
  - Single umbilical artery [Unknown]
  - Neutropenia [Unknown]
  - Atrial septal defect [Recovered/Resolved]
  - Congenital hypothyroidism [Unknown]
  - Foetal exposure during pregnancy [Unknown]
  - Congenital cerebral cyst [Unknown]
  - Ventricular septal defect [Recovering/Resolving]
  - Foetal growth restriction [Unknown]

NARRATIVE: CASE EVENT DATE: 20190731
